FAERS Safety Report 12273190 (Version 2)
Quarter: 2016Q2

REPORT INFORMATION
  Report Type: Spontaneous
  Country: CH (occurrence: CH)
  Receive Date: 20160415
  Receipt Date: 20160608
  Transmission Date: 20160815
  Serious: Yes (Other)
  Sender: FDA-Public Use
  Company Number: CH-JNJFOC-20160410899

PATIENT
  Age: 62 Year

DRUGS (2)
  1. XARELTO [Suspect]
     Active Substance: RIVAROXABAN
     Indication: CEREBROVASCULAR ACCIDENT PROPHYLAXIS
     Route: 048
     Dates: start: 20130828, end: 201604
  2. XARELTO [Suspect]
     Active Substance: RIVAROXABAN
     Indication: ATRIAL FIBRILLATION
     Route: 048
     Dates: start: 20130828, end: 201604

REACTIONS (4)
  - Coagulopathy [Recovered/Resolved]
  - Transaminases increased [Recovered/Resolved]
  - Liver disorder [Recovered/Resolved]
  - Hepatotoxicity [Unknown]

NARRATIVE: CASE EVENT DATE: 20160405
